FAERS Safety Report 4921377-4 (Version None)
Quarter: 2006Q1

REPORT INFORMATION
  Report Type: 
  Country: None (occurrence: None)
  Receive Date: 20060224
  Receipt Date: 20060209
  Transmission Date: 20060701
  Serious: Yes (Hospitalization)
  Sender: FDA-Public Use
  Company Number: HQWYE767113FEB06

PATIENT
  Sex: Female

DRUGS (7)
  1. ENBREL [Suspect]
     Indication: RHEUMATOID ARTHRITIS
     Route: 058
     Dates: start: 20051019, end: 20060204
  2. PREDONINE [Concomitant]
     Dosage: UNKNOWN
     Route: 065
  3. BREDININ [Concomitant]
     Dosage: UNKNOWN
     Route: 065
  4. AZULFIDINE [Concomitant]
     Dosage: UNKNOWN
     Route: 065
  5. ENZYMES [Concomitant]
     Dosage: UNKNOWN
     Route: 065
  6. CYTOTEC [Concomitant]
     Dosage: UNKNOWN
     Route: 065
  7. LANSOPRAZOLE [Concomitant]
     Dosage: UNKNOWN
     Route: 065

REACTIONS (2)
  - ENTEROCOLITIS [None]
  - STOMATITIS [None]
